FAERS Safety Report 6637852-0 (Version None)
Quarter: 2010Q1

REPORT INFORMATION
  Report Type: 
  Country: None (occurrence: None)
  Receive Date: 20100317
  Receipt Date: 20100309
  Transmission Date: 20100710
  Serious: Yes (Hospitalization)
  Sender: FDA-Public Use
  Company Number: GB-ALEXION-A201000270

PATIENT

DRUGS (2)
  1. SOLIRIS [Suspect]
     Indication: PAROXYSMAL NOCTURNAL HAEMOGLOBINURIA
     Dosage: UNK
     Route: 042
     Dates: start: 20090616
  2. SOLIRIS [Suspect]
     Dosage: UNK
     Route: 042

REACTIONS (3)
  - PNEUMONIA [None]
  - PYREXIA [None]
  - SEPSIS [None]
